FAERS Safety Report 8388614-8 (Version None)
Quarter: 2012Q2

REPORT INFORMATION
  Report Type: 
  Country: None (occurrence: None)
  Receive Date: 20120525
  Receipt Date: 20120522
  Transmission Date: 20120825
  Serious: Yes (Death, Life-Threatening, Hospitalization, Disabling, Other)
  Sender: FDA-Public Use
  Company Number: US-MERCK-1205USA01632

PATIENT
  Age: 67 Year
  Sex: Male

DRUGS (11)
  1. ISENTRESS [Suspect]
     Indication: HIV INFECTION
     Route: 048
  2. LEVOTHYROXINE SODIUM [Concomitant]
     Route: 065
  3. ATROPINE [Concomitant]
     Route: 065
  4. PRILOSEC [Concomitant]
     Route: 065
  5. EPZICOM [Concomitant]
     Route: 065
  6. SENNA [Concomitant]
     Route: 065
  7. MORPHINE SULFATE [Concomitant]
     Route: 065
  8. ATIVAN [Concomitant]
     Route: 065
  9. SPIRONOLACTONE [Concomitant]
     Route: 065
  10. COMPAZINE [Concomitant]
     Route: 065
  11. COLACE [Concomitant]
     Route: 065

REACTIONS (2)
  - CARDIAC FAILURE CONGESTIVE [None]
  - PNEUMONIA [None]
